FAERS Safety Report 7137765-4 (Version None)
Quarter: 2010Q4

REPORT INFORMATION
  Report Type: 
  Country: None (occurrence: None)
  Receive Date: 20101206
  Receipt Date: 20101201
  Transmission Date: 20110411
  Serious: Yes (Death)
  Sender: FDA-Public Use
  Company Number: PHHY2010FR78044

PATIENT
  Sex: Female
  Weight: 82 kg

DRUGS (4)
  1. RASILEZ [Suspect]
     Indication: HYPERTENSION
     Dosage: 150 MG DAILY
     Route: 048
     Dates: start: 20100901, end: 20100928
  2. LASIX [Concomitant]
  3. AMLODIPINE [Concomitant]
  4. ANTIHYPERTENSIVES [Concomitant]

REACTIONS (4)
  - ARRHYTHMIA [None]
  - FACE OEDEMA [None]
  - HYPERTENSION [None]
  - SUDDEN CARDIAC DEATH [None]
